FAERS Safety Report 8540291-9 (Version None)
Quarter: 2012Q3

REPORT INFORMATION
  Report Type: 
  Country: None (occurrence: None)
  Receive Date: 20120713
  Receipt Date: 20120628
  Transmission Date: 20120928
  Serious: Yes (Hospitalization, Other)
  Sender: FDA-Public Use
  Company Number: 2012PL000097

PATIENT
  Age: 74 Year
  Sex: Male

DRUGS (9)
  1. PROLEUKIN [Suspect]
     Indication: METASTATIC RENAL CELL CARCINOMA
     Dosage: UNK
  2. EVEROLIMUS (EVEROLIMUS) [Suspect]
     Indication: RENAL CELL CARCINOMA
     Dosage: 10 MG, QD, PO
     Route: 048
     Dates: start: 20100930
  3. TECELEUKIN [Concomitant]
  4. ALLOPURINOL [Concomitant]
  5. INGTERFERON ALFA [Concomitant]
  6. SORAFENIB TOSILATE [Concomitant]
  7. SUNITINIB MALATE [Concomitant]
  8. PAXIL [Concomitant]
  9. CRESTOR [Concomitant]

REACTIONS (5)
  - INTERSTITIAL LUNG DISEASE [None]
  - ENTEROCOLITIS [None]
  - HYPERGLYCAEMIA [None]
  - SEPSIS [None]
  - METASTASES TO LUNG [None]
